FAERS Safety Report 15469224 (Version 1)
Quarter: 2018Q4

REPORT INFORMATION
  Report Type: Spontaneous
  Country: JP (occurrence: JP)
  Receive Date: 20181005
  Receipt Date: 20181005
  Transmission Date: 20190205
  Serious: Yes (Death, Other)
  Sender: FDA-Public Use
  Company Number: JP-JNJFOC-20181001171

PATIENT
  Age: 47 Year
  Sex: Female

DRUGS (8)
  1. LUNESTA [Concomitant]
     Active Substance: ESZOPICLONE
     Indication: SCHIZOPHRENIA
     Dosage: 10 DOSES
     Route: 065
     Dates: start: 20180127, end: 20180810
  2. INVEGA [Suspect]
     Active Substance: PALIPERIDONE
     Indication: SCHIZOPHRENIA
     Dosage: 6-12 MG
     Route: 048
     Dates: start: 20150914, end: 20180810
  3. TETRAMIDE [Suspect]
     Active Substance: MIANSERIN
     Indication: SCHIZOPHRENIA
     Route: 048
     Dates: start: 20180224, end: 20180810
  4. ZYPREXA [Suspect]
     Active Substance: OLANZAPINE
     Indication: SCHIZOPHRENIA
     Dosage: 2.5 TO 7.5 MG
     Route: 048
     Dates: start: 20160506, end: 20180810
  5. LENDORMIN [Concomitant]
     Active Substance: BROTIZOLAM
     Indication: SCHIZOPHRENIA
     Route: 065
     Dates: start: 20180324, end: 20180810
  6. ABILIFY [Suspect]
     Active Substance: ARIPIPRAZOLE
     Indication: SCHIZOPHRENIA
     Route: 048
     Dates: start: 20150914
  7. ROZEREM [Concomitant]
     Active Substance: RAMELTEON
     Indication: SCHIZOPHRENIA
     Route: 065
     Dates: start: 20180127, end: 20180810
  8. REXULTI [Suspect]
     Active Substance: BREXPIPRAZOLE
     Indication: SCHIZOPHRENIA
     Route: 048
     Dates: start: 20180730, end: 20180810

REACTIONS (3)
  - Toxicity to various agents [Fatal]
  - Schizophrenia [Unknown]
  - Malaise [Unknown]

NARRATIVE: CASE EVENT DATE: 20180730
